FAERS Safety Report 10224864 (Version 3)
Quarter: 2014Q2

REPORT INFORMATION
  Report Type: Report from Study
  Country: US (occurrence: US)
  Receive Date: 20140609
  Receipt Date: 20140613
  Transmission Date: 20141212
  Serious: Yes (Life-Threatening, Hospitalization, Disabling, Other)
  Sender: FDA-Public Use
  Company Number: US-PFIZER INC-2014094358

PATIENT
  Age: 56 Year
  Sex: Male
  Weight: 91.3 kg

DRUGS (21)
  1. TOFACITINIB CITRATE [Suspect]
     Indication: PSORIASIS
     Dosage: 1 TABLET, 2X/DAY
     Route: 048
     Dates: start: 20121003, end: 20140327
  2. CARVEDILOL [Concomitant]
     Indication: HYPERTENSION
     Dosage: 12.5 MG, 1X/DAY
     Route: 048
     Dates: start: 20120713
  3. ALDACTAZIDE [Concomitant]
     Indication: HYPERTENSION
     Dosage: 25/25 MG QD
     Route: 048
     Dates: start: 20120829
  4. LOSARTAN [Concomitant]
     Indication: HYPERTENSION
     Dosage: 100 MG, 1X/DAY
     Route: 048
     Dates: start: 20120829
  5. AMLODIPINE [Concomitant]
     Indication: HYPERTENSION
     Dosage: 10 MG, 1X/DAY
     Route: 048
     Dates: start: 20121219
  6. PRAVASTATIN [Concomitant]
     Indication: HYPERCHOLESTEROLAEMIA
     Dosage: 20 MG, 1X/DAY
     Route: 048
     Dates: start: 20120606
  7. GLUCOVANCE [Concomitant]
     Indication: DIABETES MELLITUS
     Dosage: 5/500 MG BID
     Route: 048
     Dates: start: 20130220
  8. LANTUS [Concomitant]
     Indication: DIABETES MELLITUS
     Dosage: 20 IU, 1X/DAY
     Route: 058
     Dates: start: 20130807
  9. OMEPRAZOLE [Concomitant]
     Indication: GASTROOESOPHAGEAL REFLUX DISEASE
     Dosage: 20 MG, 1X/DAY
     Route: 048
     Dates: start: 20111104
  10. ASPIRIN [Concomitant]
     Indication: CARDIOVASCULAR EVENT PROPHYLAXIS
     Dosage: 81 MG, 1X/DAY
     Route: 048
     Dates: start: 2001
  11. VITAMIN B6 [Concomitant]
     Indication: NUTRITIONAL SUPPLEMENTATION
     Dosage: 1 DF (TAB), 1X/DAY
     Route: 048
     Dates: start: 198106
  12. VITAMIN C [Concomitant]
     Indication: NUTRITIONAL SUPPLEMENTATION
     Dosage: 1 DF (TAB), 1X/DAY
     Route: 048
     Dates: start: 198106
  13. IMODIUM [Concomitant]
     Indication: DIARRHOEA
     Dosage: MG, PRN
     Route: 048
     Dates: start: 20121015
  14. FLAXSEED OIL [Concomitant]
     Indication: NUTRITIONAL SUPPLEMENTATION
     Dosage: 1 DF (TAB), 2X/DAY
     Route: 048
     Dates: start: 2010
  15. CINNAMON VITAMIN [Concomitant]
     Indication: NUTRITIONAL SUPPLEMENTATION
     Dosage: 2000 MG, 2X/DAY
     Route: 048
     Dates: start: 2010
  16. CALCIUM [Concomitant]
     Indication: NUTRITIONAL SUPPLEMENTATION
     Dosage: 1 DF (TAB), 2X/DAY
     Route: 048
     Dates: start: 2010
  17. AZELASTINE HYDROCHLORIDE [Concomitant]
     Indication: NASOPHARYNGITIS
     Dosage: 2 DF (PUFFS), AS NEEDED,  INHALATION
     Route: 055
     Dates: start: 20121121
  18. ZINC [Concomitant]
     Indication: NASOPHARYNGITIS
     Dosage: 1 DF (LOZENGE), AS NEEDED
     Route: 048
     Dates: start: 20130330
  19. FLUTICASONE PROPIONATE [Concomitant]
     Indication: NASOPHARYNGITIS
     Dosage: 50 UG, AS NEEDED,  INHALATION
     Route: 055
     Dates: start: 20130306
  20. CLINDAMYCIN PHOSPHATE [Concomitant]
     Indication: FOLLICULITIS
     Dosage: 1 %, 1X/DAY
     Route: 061
     Dates: start: 20130906
  21. FISH OIL [Concomitant]
     Indication: HYPERCHOLESTEROLAEMIA
     Dosage: 1400 MG, 2X/DAY
     Route: 048
     Dates: start: 2010

REACTIONS (1)
  - Lung adenocarcinoma stage IV [Not Recovered/Not Resolved]
